FAERS Safety Report 24856731 (Version 1)
Quarter: 2025Q1

REPORT INFORMATION
  Report Type: Report from Study
  Country: FR (occurrence: FR)
  Receive Date: 20250117
  Receipt Date: 20250117
  Transmission Date: 20250409
  Serious: Yes (Life-Threatening, Other)
  Sender: TAKEDA
  Company Number: FR-TAKEDA-2025TUS005209

PATIENT
  Age: 65 Year
  Sex: Female

DRUGS (1)
  1. FRUQUINTINIB [Suspect]
     Active Substance: FRUQUINTINIB
     Indication: Colorectal cancer
     Dates: start: 20241101, end: 20241201

REACTIONS (4)
  - Metastases to central nervous system [Unknown]
  - Hemiparesis [Unknown]
  - Fatigue [Unknown]
  - Asthenia [Unknown]
